FAERS Safety Report 12558286 (Version 1)
Quarter: 2016Q3

REPORT INFORMATION
  Report Type: Report from Study
  Country: US (occurrence: US)
  Receive Date: 20160714
  Receipt Date: 20160714
  Transmission Date: 20161109
  Serious: Yes (Hospitalization, Other)
  Sender: FDA-Public Use
  Company Number: US-ABBVIE-16K-163-1669824-00

PATIENT
  Age: 74 Year
  Sex: Female
  Weight: 104.42 kg

DRUGS (2)
  1. HUMIRA [Suspect]
     Active Substance: ADALIMUMAB
     Indication: RHEUMATOID ARTHRITIS
     Route: 058
  2. HUMIRA [Suspect]
     Active Substance: ADALIMUMAB
     Route: 058

REACTIONS (13)
  - Anaemia [Unknown]
  - Influenza like illness [Not Recovered/Not Resolved]
  - Anxiety [Recovered/Resolved]
  - Wound haemorrhage [Recovering/Resolving]
  - Hypersomnia [Not Recovered/Not Resolved]
  - General physical health deterioration [Recovered/Resolved]
  - Anaemia [Unknown]
  - Wound secretion [Recovering/Resolving]
  - Wound [Recovered/Resolved]
  - Renal failure [Unknown]
  - Urinary tract infection [Unknown]
  - Wound [Recovering/Resolving]
  - Wound infection fungal [Recovered/Resolved]

NARRATIVE: CASE EVENT DATE: 201511
